FAERS Safety Report 7287437-0 (Version None)
Quarter: 2011Q1

REPORT INFORMATION
  Report Type: 
  Country: None (occurrence: None)
  Receive Date: 20110211
  Receipt Date: 20110203
  Transmission Date: 20110831
  Serious: Yes (Other)
  Sender: FDA-Public Use
  Company Number: US-SANOFI-AVENTIS-2010SA028152

PATIENT
  Age: 76 Year
  Sex: Female

DRUGS (4)
  1. MULTAQ [Suspect]
     Indication: ATRIAL FIBRILLATION
     Route: 048
     Dates: start: 20100301, end: 20100419
  2. ATENOLOL [Concomitant]
  3. COUMADIN [Concomitant]
  4. FORTEO [Concomitant]
     Indication: OSTEOPOROSIS

REACTIONS (9)
  - LIVER FUNCTION TEST ABNORMAL [None]
  - HEPATITIS [None]
  - ATRIAL FIBRILLATION [None]
  - DECREASED APPETITE [None]
  - ABDOMINAL DISTENSION [None]
  - SYSTEMIC INFLAMMATORY RESPONSE SYNDROME [None]
  - THROAT IRRITATION [None]
  - INTERNATIONAL NORMALISED RATIO INCREASED [None]
  - WEIGHT DECREASED [None]
